FAERS Safety Report 5202670-7 (Version None)
Quarter: 2007Q1

REPORT INFORMATION
  Report Type: 
  Country: None (occurrence: None)
  Receive Date: 20070109
  Receipt Date: 20061211
  Transmission Date: 20070707
  Serious: Yes (Death, Hospitalization, Other)
  Sender: FDA-Public Use
  Company Number: US-PFIZER INC-2006153583

PATIENT
  Sex: Male
  Weight: 70.8 kg

DRUGS (1)
  1. BEXTRA [Suspect]
     Indication: TESTICULAR PAIN
     Dates: start: 20040201, end: 20040304

REACTIONS (2)
  - CARDIAC ARREST [None]
  - MYOCARDIAL INFARCTION [None]
